FAERS Safety Report 8435984-8 (Version None)
Quarter: 2012Q2

REPORT INFORMATION
  Report Type: 
  Country: None (occurrence: None)
  Receive Date: 20120614
  Receipt Date: 20120530
  Transmission Date: 20120825
  Serious: Yes (Hospitalization)
  Sender: FDA-Public Use
  Company Number: TR-WATSON-2012-09615

PATIENT
  Age: 17 Year
  Sex: Male

DRUGS (2)
  1. PREDNISOLONE [Suspect]
     Indication: ORCHITIS
     Dosage: 4 MG, DAILY
     Route: 048
  2. PREDNISOLONE [Suspect]
     Dosage: 25 MG, DAILY
     Route: 042

REACTIONS (3)
  - SEXUALLY INAPPROPRIATE BEHAVIOUR [None]
  - ABDOMINAL DISCOMFORT [None]
  - PSYCHOTIC DISORDER [None]
